FAERS Safety Report 7756370-X (Version None)
Quarter: 2011Q3

REPORT INFORMATION
  Report Type: 
  Country: None (occurrence: None)
  Receive Date: 20110915
  Receipt Date: 20110915
  Transmission Date: 20111222
  Serious: Yes (Death)
  Sender: FDA-Public Use
  Company Number: None

PATIENT
  Sex: Male
  Weight: 59.5 kg

DRUGS (1)
  1. BENDAMUSTINE [Suspect]
     Dosage: 217 MG EVERY 21 D IV
     Route: 042
     Dates: start: 20110503, end: 20110713

REACTIONS (7)
  - FATIGUE [None]
  - UNRESPONSIVE TO STIMULI [None]
  - BLOOD COUNT ABNORMAL [None]
  - METASTASES TO SPINE [None]
  - METASTASES TO CENTRAL NERVOUS SYSTEM [None]
  - TRANSIENT ISCHAEMIC ATTACK [None]
  - ASTHENIA [None]
